FAERS Safety Report 15074287 (Version 1)
Quarter: 2018Q2

REPORT INFORMATION
  Report Type: Spontaneous
  Country: US (occurrence: US)
  Receive Date: 20180627
  Receipt Date: 20180627
  Transmission Date: 20180711
  Serious: No
  Sender: FDA-Public Use
  Company Number: US-BEH-2018092191

PATIENT
  Age: 39 Year
  Sex: Female

DRUGS (1)
  1. HIZENTRA [Suspect]
     Active Substance: HUMAN IMMUNOGLOBULIN G
     Indication: IMMUNODEFICIENCY
     Dosage: 3 MG, QOD
     Route: 058
     Dates: start: 20180324

REACTIONS (3)
  - Contusion [Unknown]
  - Increased tendency to bruise [Unknown]
  - Ear pain [Unknown]

NARRATIVE: CASE EVENT DATE: 2018
